FAERS Safety Report 6544990-X (Version None)
Quarter: 2010Q1

REPORT INFORMATION
  Report Type: 
  Country: None (occurrence: None)
  Receive Date: 20100121
  Receipt Date: 20100114
  Transmission Date: 20100710
  Serious: Yes (Other)
  Sender: FDA-Public Use
  Company Number: A0839770A

PATIENT
  Sex: Male
  Weight: 86.5 kg

DRUGS (4)
  1. ELTROMBOPAG [Suspect]
     Indication: THROMBOCYTOPENIA
     Route: 048
     Dates: start: 20091124
  2. PEG-INTRON [Suspect]
     Dosage: 135MCG WEEKLY
     Route: 058
     Dates: start: 20091124
  3. REBETOL [Suspect]
     Route: 048
     Dates: start: 20091124
  4. ELTROMBOPAG [Suspect]
     Dosage: 25MG PER DAY
     Route: 048
     Dates: start: 20091027, end: 20091123

REACTIONS (1)
  - JAUNDICE [None]
